FAERS Safety Report 9067694 (Version 1)
Quarter: 2013Q1

REPORT INFORMATION
  Report Type: Report from Study
  Country: AT (occurrence: AT)
  Receive Date: 20130128
  Receipt Date: 20130128
  Transmission Date: 20140127
  Serious: Yes (Other)
  Sender: FDA-Public Use
  Company Number: AT-ROCHE-603078

PATIENT
  Age: 82 Year
  Sex: Female

DRUGS (1)
  1. BEVACIZUMAB [Suspect]
     Indication: AGE-RELATED MACULAR DEGENERATION
     Dosage: STRENGTH: 2.5 MG/0.1 ML.
     Route: 031

REACTIONS (2)
  - Vitritis [Recovered/Resolved]
  - Visual acuity reduced [Recovered/Resolved]
